FAERS Safety Report 21373555 (Version 2)
Quarter: 2022Q3

REPORT INFORMATION
  Report Type: Spontaneous
  Country: DE (occurrence: DE)
  Receive Date: 20220925
  Receipt Date: 20220926
  Transmission Date: 20221026
  Serious: Yes (Hospitalization, Other)
  Sender: FDA-Public Use
  Company Number: DE-ADRED-08396-01

PATIENT
  Age: 91 Year
  Sex: Female

DRUGS (3)
  1. APIXABAN [Suspect]
     Active Substance: APIXABAN
     Indication: Product used for unknown indication
     Route: 065
  2. TAVOR (LORAZEPAM) [Concomitant]
     Active Substance: LORAZEPAM
     Indication: Product used for unknown indication
     Dosage: NEED LOZENGE
     Route: 065
  3. DULCOLAX (BISACODYL) [Concomitant]
     Active Substance: BISACODYL
     Indication: Product used for unknown indication
     Dosage: NEED SUPPOSITORIES
     Route: 065

REACTIONS (12)
  - Renal impairment [Unknown]
  - Memory impairment [Unknown]
  - Duodenal ulcer [Unknown]
  - Tachycardia [Unknown]
  - Gastrointestinal haemorrhage [Unknown]
  - Electrolyte imbalance [Unknown]
  - Haematemesis [Unknown]
  - Anaemia [Unknown]
  - Tachypnoea [Unknown]
  - Disorientation [Unknown]
  - General physical health deterioration [Unknown]
  - Systemic infection [Unknown]
